FAERS Safety Report 7240819-5 (Version None)
Quarter: 2011Q1

REPORT INFORMATION
  Report Type: 
  Country: None (occurrence: None)
  Receive Date: 20110124
  Receipt Date: 20110114
  Transmission Date: 20110831
  Serious: Yes (Other)
  Sender: FDA-Public Use
  Company Number: US-JNJFOC-20101204251

PATIENT
  Sex: Female
  Weight: 68.04 kg

DRUGS (6)
  1. AMITRIPTYLINE [Concomitant]
     Indication: SLEEP DISORDER THERAPY
     Route: 048
  2. REMICADE [Suspect]
     Route: 042
  3. PREDNISONE [Concomitant]
     Indication: RHEUMATOID ARTHRITIS
     Route: 048
  4. WELLBUTRIN [Concomitant]
     Indication: DEPRESSION
     Route: 048
  5. REMICADE [Suspect]
     Indication: RHEUMATOID ARTHRITIS
     Route: 042
  6. METHOTREXATE [Concomitant]
     Indication: RHEUMATOID ARTHRITIS
     Route: 048

REACTIONS (6)
  - OEDEMA PERIPHERAL [None]
  - GLAUCOMA [None]
  - CHOLECYSTECTOMY [None]
  - IRRITABLE BOWEL SYNDROME [None]
  - FEELING HOT [None]
  - PAIN [None]
